FAERS Safety Report 10893148 (Version 1)
Quarter: 2015Q1

REPORT INFORMATION
  Report Type: Spontaneous
  Country: US (occurrence: US)
  Receive Date: 20150306
  Receipt Date: 20150306
  Transmission Date: 20150721
  Serious: Yes (Death)
  Sender: FDA-Public Use
  Company Number: US-BAYER-2015-030909

PATIENT
  Sex: Female

DRUGS (1)
  1. STIVARGA [Suspect]
     Active Substance: REGORAFENIB
     Indication: COLON CANCER
     Dosage: DAILY DOSE 160 MG; DAILY FOR 21 DAYS
     Route: 048
     Dates: start: 20140716, end: 20140807

REACTIONS (1)
  - Death [Fatal]

NARRATIVE: CASE EVENT DATE: 20140807
